FAERS Safety Report 13030987 (Version 2)
Quarter: 2017Q1

REPORT INFORMATION
  Report Type: Report from Study
  Country: DE (occurrence: DE)
  Receive Date: 20161215
  Receipt Date: 20170103
  Transmission Date: 20170428
  Serious: Yes (Hospitalization)
  Sender: FDA-Public Use
  Company Number: DE-ASTELLAS-2016US048797

PATIENT
  Age: 60 Year
  Sex: Male
  Weight: 109 kg

DRUGS (5)
  1. AKRINOR [Concomitant]
     Active Substance: CAFEDRINE HYDROCHLORIDE\THEODRENALINE
     Indication: HYPOTENSION
     Route: 042
     Dates: start: 20161122, end: 20161123
  2. VALCYTE [Concomitant]
     Active Substance: VALGANCICLOVIR HYDROCHLORIDE
     Indication: ANTIVIRAL PROPHYLAXIS
     Route: 048
     Dates: start: 20161123, end: 20161128
  3. TACROLIMUS. [Suspect]
     Active Substance: TACROLIMUS
     Route: 048
     Dates: start: 20161122, end: 20161128
  4. EFFORTIL [Concomitant]
     Active Substance: ETILEFRINE HYDROCHLORIDE
     Indication: HYPOTENSION
     Dosage: 20 TROPFEN, ONCE DAILY
     Route: 048
     Dates: start: 20161124, end: 20161124
  5. TACROLIMUS. [Suspect]
     Active Substance: TACROLIMUS
     Indication: RENAL TRANSPLANT
     Dosage: UNK UNK, ONCE DAILY
     Route: 065
     Dates: start: 20161122, end: 20161123

REACTIONS (1)
  - Delayed graft function [Recovered/Resolved]

NARRATIVE: CASE EVENT DATE: 20161129
